FAERS Safety Report 14405929 (Version 2)
Quarter: 2018Q1

REPORT INFORMATION
  Report Type: Spontaneous
  Country: GB (occurrence: GB)
  Receive Date: 20180118
  Receipt Date: 20180208
  Transmission Date: 20180509
  Serious: Yes (Death)
  Sender: FDA-Public Use
  Company Number: GB-ACORDA-ACO_145729_2018

PATIENT
  Age: 73 Year
  Sex: Female

DRUGS (2)
  1. GABAPENTINE [Concomitant]
     Active Substance: GABAPENTIN
     Indication: PRODUCT USED FOR UNKNOWN INDICATION
     Route: 065
  2. QUTENZA [Suspect]
     Active Substance: CAPSAICIN
     Indication: PROCEDURAL PAIN
     Dosage: UNK, UNK, ONCE
     Route: 003

REACTIONS (1)
  - Death [Fatal]
